FAERS Safety Report 5917650-3 (Version None)
Quarter: 2008Q4

REPORT INFORMATION
  Report Type: 
  Country: None (occurrence: None)
  Receive Date: 20081014
  Receipt Date: 20081002
  Transmission Date: 20090506
  Serious: Yes (Hospitalization)
  Sender: FDA-Public Use
  Company Number: DE-WYE-H06276008

PATIENT
  Age: 69 Year
  Sex: Male

DRUGS (3)
  1. PANTOPRAZOLE SODIUM [Suspect]
     Indication: HELICOBACTER INFECTION
     Route: 048
     Dates: start: 20080923
  2. CLARITHROMYCIN [Suspect]
     Indication: HELICOBACTER INFECTION
     Route: 048
     Dates: start: 20080923
  3. AMOXICILLIN [Suspect]
     Indication: HELICOBACTER INFECTION
     Route: 048
     Dates: start: 20080923

REACTIONS (1)
  - HYPOGLYCAEMIA [None]
